FAERS Safety Report 16468618 (Version 1)
Quarter: 2019Q2

REPORT INFORMATION
  Report Type: Report from Study
  Country: CA (occurrence: CA)
  Receive Date: 20190624
  Receipt Date: 20190624
  Transmission Date: 20190711
  Serious: Yes (Other)
  Sender: FDA-Public Use
  Company Number: CA-RECRO GAINESVILLE LLC-REPH-2019-000103

PATIENT
  Age: 49 Year
  Sex: Female

DRUGS (8)
  1. VERAPAMIL HYDROCHLORIDE SUSTAINED RELEASE [Suspect]
     Active Substance: VERAPAMIL HYDROCHLORIDE
     Indication: HYPOMANIA
     Dosage: UNK
     Route: 048
  2. PHENELZINE [Suspect]
     Active Substance: PHENELZINE
     Dosage: 30 MILLIGRAM
  3. TRIFLUOPERAZINE [Suspect]
     Active Substance: TRIFLUOPERAZINE\TRIFLUOPERAZINE HYDROCHLORIDE
     Indication: HYPOMANIA
     Dosage: 5 MILLIGRAM, QD
  4. PHENELZINE [Suspect]
     Active Substance: PHENELZINE
     Indication: MAJOR DEPRESSION
     Dosage: 30 MILLIGRAM
     Route: 048
  5. PHENELZINE [Suspect]
     Active Substance: PHENELZINE
     Dosage: 45 MILLIGRAM
  6. PHENELZINE [Suspect]
     Active Substance: PHENELZINE
     Dosage: 60 MILLIGRAM
  7. LITHIUM. [Concomitant]
     Active Substance: LITHIUM
     Indication: HYPOMANIA
     Dosage: 900 MILLIGRAM, QD
  8. TRIFLUOPERAZINE [Suspect]
     Active Substance: TRIFLUOPERAZINE\TRIFLUOPERAZINE HYDROCHLORIDE
     Dosage: 5 MILLIGRAM, QD

REACTIONS (4)
  - Depression [Recovered/Resolved]
  - Psychomotor retardation [Recovered/Resolved]
  - Suicidal behaviour [Recovered/Resolved]
  - Off label use [Recovered/Resolved]
